FAERS Safety Report 19153447 (Version 1)
Quarter: 2021Q2

REPORT INFORMATION
  Report Type: Spontaneous
  Country: US (occurrence: US)
  Receive Date: 20210419
  Receipt Date: 20210419
  Transmission Date: 20210717
  Serious: Yes (Hospitalization)
  Sender: FDA-Public Use
  Company Number: None

PATIENT
  Age: 54 Year
  Sex: Female
  Weight: 103.5 kg

DRUGS (4)
  1. CASIRIVIMAB/IMDEVIMAB [Suspect]
     Active Substance: CASIRIVIMAB\IMDEVIMAB
     Indication: COVID-19
     Route: 042
  2. ACETAMINOPHEN. [Concomitant]
     Active Substance: ACETAMINOPHEN
  3. HYDROMORPHONE [Concomitant]
     Active Substance: HYDROMORPHONE
  4. DIPHENDHYDRAMINE [Concomitant]

REACTIONS (5)
  - Chills [None]
  - Pyrexia [None]
  - Cough [None]
  - Acute myocardial infarction [None]
  - Fatigue [None]

NARRATIVE: CASE EVENT DATE: 20210328
